FAERS Safety Report 9513273 (Version 2)
Quarter: 2013Q3

REPORT INFORMATION
  Report Type: Spontaneous
  Country: FR (occurrence: FR)
  Receive Date: 20130910
  Receipt Date: 20130910
  Transmission Date: 20140515
  Serious: Yes (Other)
  Sender: FDA-Public Use
  Company Number: FR-GILEAD-2013-0080811

PATIENT
  Age: 71 Year
  Sex: Male

DRUGS (4)
  1. EVIPLERA [Suspect]
     Indication: HIV INFECTION
     Dosage: UNK
     Route: 048
     Dates: start: 20130130, end: 20130716
  2. CRESTOR [Concomitant]
     Route: 048
  3. KARDEGIC [Concomitant]
     Route: 048
  4. EFFEXOR [Concomitant]

REACTIONS (3)
  - Cognitive disorder [Recovered/Resolved]
  - Insomnia [Unknown]
  - Depression [Unknown]
